FAERS Safety Report 5202354-5 (Version None)
Quarter: 2006Q4

REPORT INFORMATION
  Report Type: 
  Country: None (occurrence: None)
  Receive Date: 20061012
  Receipt Date: 20050914
  Transmission Date: 20070319
  Serious: Yes (Other)
  Sender: FDA-Public Use
  Company Number: 2005S1000183

PATIENT
  Age: 65 Year
  Sex: Male

DRUGS (1)
  1. CUBICIN [Suspect]
     Indication: ENDOCARDITIS STAPHYLOCOCCAL

REACTIONS (3)
  - EOSINOPHILIC PNEUMONIA [None]
  - HYPERPYREXIA [None]
  - SYSTEMIC INFLAMMATORY RESPONSE SYNDROME [None]
